FAERS Safety Report 7345835-0 (Version None)
Quarter: 2011Q1

REPORT INFORMATION
  Report Type: 
  Country: None (occurrence: None)
  Receive Date: 20110311
  Receipt Date: 20091215
  Transmission Date: 20110831
  Serious: No
  Sender: FDA-Public Use
  Company Number: US-BIOGENIDEC-2009BI041254

PATIENT
  Sex: Female

DRUGS (2)
  1. TYSABRI [Suspect]
     Indication: MULTIPLE SCLEROSIS
     Route: 042
     Dates: start: 20070109
  2. AVONEX [Concomitant]
     Route: 030
     Dates: start: 20070201

REACTIONS (9)
  - INSOMNIA [None]
  - DEPRESSION [None]
  - FALL [None]
  - JOINT SWELLING [None]
  - ALOPECIA [None]
  - LOWER LIMB FRACTURE [None]
  - PNEUMONIA [None]
  - HEADACHE [None]
  - ANKLE FRACTURE [None]
